FAERS Safety Report 5655590-8 (Version None)
Quarter: 2008Q1

REPORT INFORMATION
  Report Type: 
  Country: None (occurrence: None)
  Receive Date: 20080212
  Receipt Date: 20070814
  Transmission Date: 20080703
  Serious: Yes (Other)
  Sender: FDA-Public Use
  Company Number: MC200700545

PATIENT
  Age: 50 Year
  Sex: Female
  Weight: 145.1 kg

DRUGS (4)
  1. ANGIOMAX [Suspect]
     Indication: PERCUTANEOUS CORONARY INTERVENTION
     Dosage: 0.1 MG/KG, BOLUS, IV BOLUS
     Route: 040
     Dates: start: 20070802, end: 20070802
  2. ANGIOMAX [Suspect]
     Dosage: 0.25 MG/KG, HR, INTRAVENOUS
     Route: 042
     Dates: start: 20070802, end: 20070802
  3. CLOPIDOGREL [Suspect]
     Indication: THERAPEUTIC PROCEDURE
     Dates: start: 20070802, end: 20070802
  4. ENOXAPARIN SODIUM [Suspect]
     Indication: THERAPEUTIC PROCEDURE
     Dosage: 1 MG/KG
     Dates: start: 20070802, end: 20070802

REACTIONS (2)
  - INTERNATIONAL NORMALISED RATIO INCREASED [None]
  - INTRA-ABDOMINAL HAEMORRHAGE [None]
